FAERS Safety Report 7988403 (Version 4)
Quarter: 2012Q4

REPORT INFORMATION
  Report Type: Spontaneous
  Country: US (occurrence: None)
  Receive Date: 20110512
  Receipt Date: 20120918
  Transmission Date: 20130627
  Serious: Yes (Life-Threatening, Hospitalization, Other)
  Sender: FDA-Public Use
  Company Number: 2011028445

PATIENT
  Age: 22 Year
  Sex: Female
  Weight: 47.63 kg

DRUGS (30)
  1. HIZENTRA [Suspect]
     Indication: HYPOGLOBULINAEMIA
     Dosage: (3 G 3X/WEEK, INFUSED 15 ML MWF; SLOW PUSH OVER 10 TO 15 MINUTES SUBCUTANEOUS)
     Route: 058
     Dates: start: 20110310
  2. HIZENTRA [Suspect]
     Indication: HYPOGLOBULINAEMIA
     Route: 058
     Dates: start: 201104
  3. HIZENTRA [Suspect]
     Indication: HYPOGLOBULINAEMIA
     Route: 058
     Dates: start: 201104
  4. HIZENTRA [Suspect]
     Indication: HYPOGLOBULINAEMIA
     Dosage: (3 g 3x/week, ??-???-2011;(15 ml) 10-15 minutes on MWF Subcutaneous)
     Route: 058
     Dates: start: 2011
  5. HIZENTRA [Suspect]
     Indication: HYPOGLOBULINAEMIA
     Route: 058
     Dates: start: 2011
  6. HIZENTRA [Suspect]
     Indication: HYPOGLOBULINAEMIA
     Dosage: (3 g 3x/week, 1 gm 5 ml vial; 15ml slow SQ push over 10-15 minutes as tolerated Subcutaneous)
     Route: 058
  7. HIZENTRA [Suspect]
     Indication: HYPOGLOBULINAEMIA
     Dosage: (3 g 3x/week, 2 gm 10 ml vial; 15 ml slow SQ push over 10-15 minutes Subcutaneous)
     Route: 058
  8. HIZENTRA [Suspect]
     Indication: HYPOGLOBULINAEMIA
     Dosage: (3 g 3x/week, 2 gm 10 ml vial; 15 ml slow SQ push over 10-15 minutes Subcutaneous)
     Route: 058
  9. MORPHINE SULFATE (MORPHINE SULFATE) [Concomitant]
  10. CEFTIN (CEFUROXIME AXETIL) [Concomitant]
  11. SIMETHICONE DROPS (DIMETICONE, ACTIVATED) [Concomitant]
  12. NORMAL SALINE FLUSH (SODIUM CHLORIDE) [Concomitant]
  13. POTASSIUM CHLORIDE GRANULES (POTASSIUM [Concomitant]
  14. ATIVAN (LORAZEPAM) [Concomitant]
  15. HEPARIN IV FLUSH (HEPARIN) [Concomitant]
  16. OXYCODONE HCL (OXYCODONE) (TABLETS) [Concomitant]
  17. MYSOLINE (PRIMIDONE) [Concomitant]
  18. CRANBERRY CAPSULE (VACCINIUM MACROCARPON) [Concomitant]
  19. ALBUTEROL (SALBUTAMOL) [Concomitant]
  20. VITAMIN D (ERGOCALCIFEROL) [Concomitant]
  21. CLARITIN (LORATADINE) [Concomitant]
  22. CARNITINE (CARNITINE) [Concomitant]
  23. CENTRUM LIQUID (CENTRUM /01522201/) [Concomitant]
  24. ACETAMINOPHEN (PARACETAMOL) [Concomitant]
  25. VITAMIN K (VITAMIN K NOS) [Concomitant]
  26. CALCIUM CARBONATE (CALCIUM CARBONATE) [Concomitant]
  27. VIMPAT (LACOSAMIDE) [Concomitant]
  28. KEPPRA (LEVETIRACETAM) [Concomitant]
  29. HEPARIN (HEPARIN) [Concomitant]
  30. EPIPEN (EPINEPHRINE) [Concomitant]

REACTIONS (9)
  - Chronic tonsillitis [None]
  - Infection [None]
  - Sepsis [None]
  - Aspiration [None]
  - Tonsillitis bacterial [None]
  - Pneumonia [None]
  - Respiratory tract infection [None]
  - Hypotension [None]
  - Tachycardia [None]
